FAERS Safety Report 24145872 (Version 8)
Quarter: 2024Q4

REPORT INFORMATION
  Report Type: Spontaneous
  Country: CN (occurrence: CN)
  Receive Date: 20240729
  Receipt Date: 20241203
  Transmission Date: 20250115
  Serious: Yes (Life-Threatening, Hospitalization, Other)
  Sender: AMGEN
  Company Number: CN-AMGEN-CHNSP2024146945

PATIENT
  Sex: Female

DRUGS (7)
  1. UPLIZNA [Suspect]
     Active Substance: INEBILIZUMAB-CDON
     Indication: Neuromyelitis optica spectrum disorder
     Dosage: 300 MILLIGRAM (ONCE)
     Route: 040
     Dates: start: 20240719, end: 2024
  2. METHYLPREDNISOLONE [Concomitant]
     Active Substance: METHYLPREDNISOLONE
     Dosage: UNK (80 MG TO 125 MG GIVEN FOR 30 MINUTES PRIOR TO ADMINSTRATION TO UPLIZNA)
     Route: 040
  3. METHYLPREDNISOLONE [Concomitant]
     Active Substance: METHYLPREDNISOLONE
     Dosage: 80 MILLIGRAM (IVGTT)
     Route: 040
  4. METHYLPREDNISOLONE [Concomitant]
     Active Substance: METHYLPREDNISOLONE
     Dosage: 100 MILLIGRAM, BID (IVGTT)
     Route: 040
  5. DIPHENHYDRAMINE [Concomitant]
     Active Substance: DIPHENHYDRAMINE
     Dosage: UNK (25 MG TO 50 MG, GIVEN FOR 30 TO 60 MINUTES PRIOR TO ADMINSTRATION TO UPLIZNA)
     Route: 048
  6. ACETAMINOPHEN [Concomitant]
     Active Substance: ACETAMINOPHEN
     Dosage: UNK (500 MG TO 650 MG, GIVEN FOR 30 TO 60 MINUTES PRIOR TO ADMINSTRATION TO UPLIZNA)
     Route: 048
  7. IMMUNE GLOBULIN NOS [Concomitant]
     Active Substance: IMMUNE GLOBULIN NOS
     Dosage: UNK UNK, QD (IVGTT QD 6 DAYS)
     Route: 040

REACTIONS (8)
  - Drug hypersensitivity [Recovered/Resolved]
  - Drug-induced liver injury [Recovered/Resolved]
  - Dermatitis exfoliative generalised [Recovering/Resolving]
  - Infection [Recovered/Resolved]
  - Gastrointestinal ulcer [Unknown]
  - Skin necrosis [Recovering/Resolving]
  - Gastrointestinal mucosal necrosis [Recovering/Resolving]
  - Epidermolysis [Unknown]

NARRATIVE: CASE EVENT DATE: 20240101
